FAERS Safety Report 7323155-8 (Version None)
Quarter: 2011Q1

REPORT INFORMATION
  Report Type: 
  Country: None (occurrence: None)
  Receive Date: 20110225
  Receipt Date: 20110214
  Transmission Date: 20110831
  Serious: Yes (Life-Threatening, Hospitalization)
  Sender: FDA-Public Use
  Company Number: DL2011-0128

PATIENT
  Age: 34 Year
  Sex: Female

DRUGS (3)
  1. RHOGAM [Concomitant]
  2. MISOPROSTOL [Suspect]
     Dosage: 800 MCG, VAGINAL
     Route: 067
     Dates: start: 20101226
  3. MIFEPREX [Suspect]
     Indication: ABORTION INDUCED
     Dosage: 200 MG, ORAL
     Route: 048
     Dates: start: 20101224

REACTIONS (13)
  - WHEEZING [None]
  - ELECTROCARDIOGRAM PR SHORTENED [None]
  - OXYGEN SATURATION DECREASED [None]
  - WHITE BLOOD CELL COUNT INCREASED [None]
  - BLOOD PRESSURE SYSTOLIC INCREASED [None]
  - HAEMATOCRIT DECREASED [None]
  - DYSPNOEA [None]
  - HAEMATURIA [None]
  - SINUS TACHYCARDIA [None]
  - HAEMOGLOBIN DECREASED [None]
  - LUNG INFILTRATION [None]
  - PULMONARY HAEMORRHAGE [None]
  - CARDIOMEGALY [None]
